FAERS Safety Report 7433922-8 (Version None)
Quarter: 2011Q2

REPORT INFORMATION
  Report Type: 
  Country: None (occurrence: None)
  Receive Date: 20110420
  Receipt Date: 20110420
  Transmission Date: 20111010
  Serious: Yes (Death)
  Sender: FDA-Public Use
  Company Number: None

PATIENT
  Age: 75 Year
  Sex: Male

DRUGS (15)
  1. REVLIMID [Suspect]
     Indication: MULTIPLE MYELOMA
     Dosage: REVLIMID 10MG DAILY ORALLY
     Route: 048
     Dates: start: 20100801, end: 20101201
  2. REVLIMID [Suspect]
     Indication: MULTIPLE MYELOMA
     Dosage: REVLIMID 10MG DAILY ORALLY
     Route: 048
     Dates: start: 20080301, end: 20081101
  3. LORAZEPAM [Concomitant]
  4. METOPROLOL SUCCINATE [Concomitant]
  5. METHADONE [Concomitant]
  6. POTASSIUM CHLORIDE [Concomitant]
  7. FAMOTIDINE [Concomitant]
  8. WARFARIN [Concomitant]
  9. MORPHINE [Concomitant]
  10. DILTIAZEM [Concomitant]
  11. LACTULOSE [Concomitant]
  12. BISACODYL [Concomitant]
  13. TRAMADOL FUROSEMIDE [Concomitant]
  14. FINASTERIDE [Concomitant]
  15. SIMVASTATIN [Concomitant]

REACTIONS (3)
  - DISEASE PROGRESSION [None]
  - MULTIPLE MYELOMA [None]
  - QUALITY OF LIFE DECREASED [None]
